FAERS Safety Report 8065128-6 (Version None)
Quarter: 2012Q1

REPORT INFORMATION
  Report Type: 
  Country: None (occurrence: None)
  Receive Date: 20120117
  Receipt Date: 20120109
  Transmission Date: 20120608
  Serious: Yes (Other)
  Sender: FDA-Public Use
  Company Number: TPA2012A00166

PATIENT
  Age: 79 Year
  Sex: Male
  Weight: 102.9665 kg

DRUGS (1)
  1. ACTOPLUS MET [Suspect]
     Indication: TYPE 2 DIABETES MELLITUS
     Dosage: BID, 15/500 MG, PER ORAL
     Route: 048
     Dates: start: 20080101

REACTIONS (2)
  - BLADDER CANCER [None]
  - ABDOMINAL PAIN [None]
